FAERS Safety Report 15276397 (Version 1)
Quarter: 2018Q3

REPORT INFORMATION
  Report Type: Spontaneous
  Country: HR (occurrence: HR)
  Receive Date: 20180814
  Receipt Date: 20180814
  Transmission Date: 20181010
  Serious: Yes (Congenital Anomaly)
  Sender: FDA-Public Use
  Company Number: HR-ACELLA PHARMACEUTICALS, LLC-2053697

PATIENT
  Sex: Male

DRUGS (3)
  1. CARBAMAZEPINE. [Suspect]
     Active Substance: CARBAMAZEPINE
  2. TOPIRAMATE. [Suspect]
     Active Substance: TOPIRAMATE
  3. PHENYTOIN SODIUM. [Suspect]
     Active Substance: PHENYTOIN SODIUM
     Indication: FOETAL EXPOSURE DURING PREGNANCY

REACTIONS (6)
  - Motor dysfunction [Unknown]
  - Body height below normal [Not Recovered/Not Resolved]
  - Dysmorphism [Not Recovered/Not Resolved]
  - Attention deficit/hyperactivity disorder [Unknown]
  - Language disorder [Unknown]
  - Psychomotor hyperactivity [Unknown]
